FAERS Safety Report 6105064-5 (Version None)
Quarter: 2009Q1

REPORT INFORMATION
  Report Type: 
  Country: None (occurrence: None)
  Receive Date: 20090306
  Receipt Date: 20090226
  Transmission Date: 20090719
  Serious: Yes (Hospitalization)
  Sender: FDA-Public Use
  Company Number: IE-AVENTIS-200911932GDDC

PATIENT
  Age: 55 Year
  Sex: Female

DRUGS (3)
  1. APIDRA [Suspect]
     Indication: TYPE 2 DIABETES MELLITUS
     Dosage: DOSE: UNK
  2. AUTOPEN INSULIN INJECTION PEN [Suspect]
     Indication: TYPE 2 DIABETES MELLITUS
  3. NOVORAPID [Concomitant]
     Indication: TYPE 2 DIABETES MELLITUS
     Dosage: DOSE: UNK

REACTIONS (3)
  - HYPERGLYCAEMIA [None]
  - MEDICATION ERROR [None]
  - VOMITING [None]
